FAERS Safety Report 4553228-4 (Version None)
Quarter: 2005Q1

REPORT INFORMATION
  Report Type: 
  Country: None (occurrence: None)
  Receive Date: 20050112
  Receipt Date: 20041223
  Transmission Date: 20050727
  Serious: Yes (Hospitalization)
  Sender: FDA-Public Use
  Company Number: USA041182956

PATIENT
  Age: 67 Year
  Sex: Female

DRUGS (5)
  1. FORTEO [Suspect]
     Indication: OSTEOPOROSIS
     Dates: start: 20030101
  2. LEXAPRO [Concomitant]
  3. KLONOPIN [Concomitant]
  4. ZOCOR(SIMVASTATIN RATIOPHARM) [Concomitant]
  5. CALCIUM CARBONATE [Concomitant]

REACTIONS (12)
  - BACK PAIN [None]
  - BLOOD CALCIUM INCREASED [None]
  - CALCIUM METABOLISM DISORDER [None]
  - CONCUSSION [None]
  - DRUG INEFFECTIVE [None]
  - FALL [None]
  - HYPERPARATHYROIDISM [None]
  - NECK PAIN [None]
  - PHYSICAL ASSAULT [None]
  - RESPIRATORY ARREST [None]
  - SEXUAL ABUSE [None]
  - THYROID NEOPLASM [None]
